FAERS Safety Report 26073217 (Version 1)
Quarter: 2025Q4

REPORT INFORMATION
  Report Type: Report from Study
  Country: CA (occurrence: None)
  Receive Date: 20251121
  Receipt Date: 20251121
  Transmission Date: 20260119
  Serious: Yes (Hospitalization, Other)
  Sender: APOTEX
  Company Number: CA-APOTEX-2025AP032733

PATIENT
  Sex: Male

DRUGS (1)
  1. LENALIDOMIDE [Suspect]
     Active Substance: LENALIDOMIDE
     Indication: Plasma cell myeloma
     Dosage: 10 MILLIGRAM, QD
     Dates: start: 20251107

REACTIONS (3)
  - Upper limb fracture [Unknown]
  - Femur fracture [Unknown]
  - Cognitive disorder [Unknown]
